FAERS Safety Report 5475432-3 (Version None)
Quarter: 2007Q4

REPORT INFORMATION
  Report Type: 
  Country: None (occurrence: None)
  Receive Date: 20071003
  Receipt Date: 20070924
  Transmission Date: 20080405
  Serious: Yes (Hospitalization)
  Sender: FDA-Public Use
  Company Number: CH-JNJFOC-20070904837

PATIENT
  Sex: Male

DRUGS (8)
  1. REMINYL [Suspect]
     Indication: DRUG USE FOR UNKNOWN INDICATION
     Route: 048
  2. ASPIRIN [Concomitant]
     Route: 048
  3. TORSEMIDE [Concomitant]
     Indication: POLYURIA
     Route: 048
  4. PRAVASTATIN [Concomitant]
     Indication: HYPERLIPIDAEMIA
     Route: 048
  5. PLAVIX [Concomitant]
     Route: 048
  6. REMERON [Concomitant]
     Route: 048
  7. EFFEXOR [Concomitant]
     Route: 048
  8. EFFEXOR [Concomitant]
     Route: 048

REACTIONS (3)
  - AGGRESSION [None]
  - DELUSION [None]
  - HALLUCINATION [None]
